FAERS Safety Report 17997102 (Version 8)
Quarter: 2025Q1

REPORT INFORMATION
  Report Type: Spontaneous
  Country: IT (occurrence: IT)
  Receive Date: 20200709
  Receipt Date: 20250329
  Transmission Date: 20250409
  Serious: Yes (Hospitalization, Other)
  Sender: AUROBINDO
  Company Number: IT-KOREA IPSEN PHARMA-2020-11219

PATIENT
  Age: 28 Year
  Sex: Female

DRUGS (8)
  1. LETROZOLE [Suspect]
     Active Substance: LETROZOLE
     Indication: Controlled ovarian stimulation
     Route: 065
  2. ENOXAPARIN SODIUM [Suspect]
     Active Substance: ENOXAPARIN SODIUM
     Indication: Haemorrhage prophylaxis
     Dosage: 4000 INTERNATIONAL UNIT, ONCE A DAY
     Route: 065
  3. GONADORELIN [Suspect]
     Active Substance: GONADORELIN
     Indication: Controlled ovarian stimulation
     Route: 065
  4. GONADORELIN [Suspect]
     Active Substance: GONADORELIN
     Indication: Prophylactic chemotherapy
     Route: 065
  5. GONADORELIN [Suspect]
     Active Substance: GONADORELIN
     Indication: Off label use
     Route: 065
  6. ORGALUTRAN [Suspect]
     Active Substance: GANIRELIX ACETATE
     Indication: Controlled ovarian stimulation
     Dosage: UNK, ONCE A DAY,STARTED RECEIVING INJECTION OF GANIRELIX [ORGALUTRAN] DAILY
     Route: 065
  7. ORGALUTRAN [Suspect]
     Active Substance: GANIRELIX ACETATE
     Dosage: 1 DOSAGE FORM, ONCE A DAY
     Route: 065
  8. FOLLITROPIN ALFA [Suspect]
     Active Substance: FOLLITROPIN ALFA
     Indication: Controlled ovarian stimulation
     Dosage: 150 INTERNATIONAL UNIT, ONCE A DAY(150IU, DAILY)
     Route: 065

REACTIONS (9)
  - Ovarian hyperstimulation syndrome [Recovered/Resolved]
  - Off label use [Unknown]
  - Ascites [Unknown]
  - Abdominal pain [Unknown]
  - Nausea [Unknown]
  - Vomiting [Unknown]
  - Abdominal distension [Unknown]
  - Dysuria [Unknown]
  - Treatment delayed [Unknown]
